FAERS Safety Report 18765229 (Version 3)
Quarter: 2021Q2

REPORT INFORMATION
  Report Type: Spontaneous
  Country: US (occurrence: US)
  Receive Date: 20210121
  Receipt Date: 20210601
  Transmission Date: 20210717
  Serious: No
  Sender: FDA-Public Use
  Company Number: US-BRISTOL-MYERS SQUIBB COMPANY-BMS-2021-004384

PATIENT
  Age: 74 Year
  Sex: Male
  Weight: 72.5 kg

DRUGS (2)
  1. OPDIVO [Suspect]
     Active Substance: NIVOLUMAB
     Indication: HEAD AND NECK CANCER
     Dosage: 220 MILLIGRAM, Q2WK
     Route: 042
     Dates: start: 201704
  2. OPDIVO [Suspect]
     Active Substance: NIVOLUMAB
     Indication: COLON CANCER
     Dosage: 440 MILLIGRAM, QMO (AND SHORTENED IT FROM 1 HOUR TO 30 MIN INFUSION TIME,)
     Route: 042

REACTIONS (4)
  - Thyroid disorder [Unknown]
  - Weight fluctuation [Unknown]
  - Product dose omission issue [Unknown]
  - Off label use [Unknown]
